FAERS Safety Report 7320343-1 (Version None)
Quarter: 2011Q1

REPORT INFORMATION
  Report Type: 
  Country: None (occurrence: None)
  Receive Date: 20110228
  Receipt Date: 20110218
  Transmission Date: 20110831
  Serious: Yes (Hospitalization)
  Sender: FDA-Public Use
  Company Number: A0745224A

PATIENT
  Age: 63 Year
  Sex: Male
  Weight: 90.9 kg

DRUGS (10)
  1. METFORMIN [Concomitant]
     Dosage: 500MG TWICE PER DAY
     Dates: start: 20000101, end: 20060101
  2. ZOCOR [Concomitant]
  3. NORVASC [Concomitant]
  4. AVANDIA [Suspect]
     Dosage: 2MG PER DAY
     Route: 048
     Dates: start: 20050101, end: 20070901
  5. ZANTAC [Concomitant]
  6. METOPROLOL [Concomitant]
     Dates: start: 20050101
  7. LASIX [Concomitant]
  8. WARFARIN [Concomitant]
  9. IMDUR [Concomitant]
  10. GLUCOPHAGE [Concomitant]
     Dosage: 500MG TWICE PER DAY
     Dates: start: 20060101

REACTIONS (3)
  - MALIGNANT HYPERTENSION [None]
  - LEFT VENTRICULAR DYSFUNCTION [None]
  - CARDIAC FAILURE CONGESTIVE [None]
